FAERS Safety Report 9366080 (Version 1)
Quarter: 2013Q2

REPORT INFORMATION
  Report Type: Spontaneous
  Country: US (occurrence: US)
  Receive Date: 20130625
  Receipt Date: 20130625
  Transmission Date: 20140414
  Serious: Yes (Other)
  Sender: FDA-Public Use
  Company Number: US-PFIZER INC-2013186635

PATIENT
  Sex: Female

DRUGS (2)
  1. DEPO-MEDROL [Suspect]
     Indication: INFECTION
     Dosage: UNK
  2. DEXAMETHASONE SODIUM PHOSPHATE [Suspect]
     Indication: INFECTION
     Dosage: UNK

REACTIONS (4)
  - Abasia [Recovered/Resolved]
  - Injection site pain [Recovered/Resolved]
  - Injection site reaction [Recovered/Resolved]
  - Reaction to drug excipients [Recovered/Resolved]
